FAERS Safety Report 7965075-1 (Version None)
Quarter: 2011Q4

REPORT INFORMATION
  Report Type: 
  Country: None (occurrence: None)
  Receive Date: 20111206
  Receipt Date: 20111206
  Transmission Date: 20120403
  Serious: No
  Sender: FDA-Public Use
  Company Number: None

PATIENT
  Sex: Female

DRUGS (2)
  1. TRIHEXYPHENIDYL HCL [Suspect]
     Dosage: 5MG QD PO
     Route: 048
  2. FLUPHENAZINE [Suspect]
     Dosage: 10MG BID PO
     Route: 048

REACTIONS (2)
  - URINARY RETENTION [None]
  - URINARY INCONTINENCE [None]
